FAERS Safety Report 13716833 (Version 1)
Quarter: 2017Q3

REPORT INFORMATION
  Report Type: Report from Study
  Country: US (occurrence: US)
  Receive Date: 20170705
  Receipt Date: 20170705
  Transmission Date: 20171127
  Serious: Yes (Other)
  Sender: FDA-Public Use
  Company Number: US-ROCHE-1956624

PATIENT

DRUGS (1)
  1. ALTEPLASE. [Suspect]
     Active Substance: ALTEPLASE
     Indication: PLEURAL DISORDER
     Dosage: IN 120 ML OF NORMAL SALINE SOLUTION
     Route: 034

REACTIONS (2)
  - Tumour haemorrhage [Unknown]
  - Haemorrhage [Unknown]
